FAERS Safety Report 8476056-6 (Version None)
Quarter: 2012Q2

REPORT INFORMATION
  Report Type: 
  Country: None (occurrence: None)
  Receive Date: 20120628
  Receipt Date: 20120621
  Transmission Date: 20120825
  Serious: Yes (Hospitalization, Other)
  Sender: FDA-Public Use
  Company Number: JP-ROCHE-1026590

PATIENT
  Sex: Female

DRUGS (2)
  1. RANIBIZUMAB [Suspect]
     Indication: AGE-RELATED MACULAR DEGENERATION
     Route: 050
     Dates: start: 20111111
  2. RANIBIZUMAB [Suspect]
     Route: 050
     Dates: start: 20111216

REACTIONS (4)
  - ANTERIOR CHAMBER FIBRIN [None]
  - ENDOPHTHALMITIS [None]
  - CILIARY HYPERAEMIA [None]
  - VISUAL ACUITY REDUCED [None]
